FAERS Safety Report 5322215-0 (Version None)
Quarter: 2007Q2

REPORT INFORMATION
  Report Type: 
  Country: None (occurrence: None)
  Receive Date: 20070511
  Receipt Date: 20070426
  Transmission Date: 20071010
  Serious: Yes (Hospitalization)
  Sender: FDA-Public Use
  Company Number: FR-ROCHE-495636

PATIENT
  Age: 45 Year
  Sex: Male

DRUGS (5)
  1. PEGASYS [Suspect]
     Indication: HEPATITIS C
     Route: 065
  2. COPEGUS [Suspect]
     Indication: HEPATITIS C
     Route: 065
  3. INVIRASE [Suspect]
     Route: 065
  4. NORVIR [Concomitant]
     Route: 065
  5. TRUVADA [Concomitant]
     Route: 065

REACTIONS (1)
  - PULMONARY HYPERTENSION [None]
